FAERS Safety Report 4348119-8 (Version None)
Quarter: 2004Q1

REPORT INFORMATION
  Report Type: 
  Country: None (occurrence: None)
  Receive Date: 20040325
  Receipt Date: 20040226
  Transmission Date: 20041129
  Serious: No
  Sender: FDA-Public Use
  Company Number: USA040258990

PATIENT
  Age: 75 Year
  Sex: Female

DRUGS (4)
  1. FORTEO [Suspect]
     Indication: OSTEOPOROSIS
     Dates: start: 20040128
  2. HYDROCHLOROTHIAZIDE [Concomitant]
  3. TOPROL-XL [Concomitant]
  4. PENTA-TRIAMTERENE HCTZ [Concomitant]

REACTIONS (4)
  - APPENDICITIS [None]
  - FLATULENCE [None]
  - GASTROINTESTINAL PAIN [None]
  - RASH [None]
